FAERS Safety Report 7917337-1 (Version None)
Quarter: 2011Q4

REPORT INFORMATION
  Report Type: 
  Country: None (occurrence: None)
  Receive Date: 20111116
  Receipt Date: 20111109
  Transmission Date: 20120403
  Serious: Yes (Life-Threatening)
  Sender: FDA-Public Use
  Company Number: PHEH2011US009071

PATIENT
  Sex: Male

DRUGS (2)
  1. SANDOSTATIN [Suspect]
  2. SANDOSTATIN LAR [Suspect]
     Indication: CARCINOID TUMOUR OF THE SMALL BOWEL
     Dosage: 30 MG, QMO
     Route: 030

REACTIONS (4)
  - DIARRHOEA [None]
  - DEHYDRATION [None]
  - ERYTHEMA [None]
  - FLUSHING [None]
